FAERS Safety Report 16308861 (Version 1)
Quarter: 2019Q2

REPORT INFORMATION
  Report Type: Spontaneous
  Country: US (occurrence: US)
  Receive Date: 20190514
  Receipt Date: 20190514
  Transmission Date: 20190711
  Serious: Yes (Hospitalization, Other)
  Sender: FDA-Public Use
  Company Number: US-AUROBINDO-AUR-APL-2019-026401

PATIENT

DRUGS (1)
  1. PREDNISONE. [Suspect]
     Active Substance: PREDNISONE
     Indication: AUTOIMMUNE HEPATITIS
     Dosage: 40 MILLIGRAM, DAILY
     Route: 048

REACTIONS (8)
  - Respiratory failure [Unknown]
  - Blood bilirubin increased [Unknown]
  - Pulmonary oedema [Unknown]
  - Hypertensive crisis [Unknown]
  - Nephropathy [Unknown]
  - Blood creatinine increased [Unknown]
  - Scleroderma renal crisis [Unknown]
  - Vanishing bile duct syndrome [Unknown]
